FAERS Safety Report 4906937-9 (Version None)
Quarter: 2006Q1

REPORT INFORMATION
  Report Type: 
  Country: None (occurrence: None)
  Receive Date: 20060207
  Receipt Date: 20060126
  Transmission Date: 20060701
  Serious: Yes (Other)
  Sender: FDA-Public Use
  Company Number: TCI2004A00932

PATIENT
  Age: 10 Year
  Sex: Male

DRUGS (2)
  1. LEUPROLIDE ACETATE [Suspect]
     Indication: PRECOCIOUS PUBERTY
     Dosage: 1.88 MG (1.88 MG, 1 IN 28 D), SUBCUTANEOUS
     Route: 058
     Dates: start: 20000331, end: 20030617
  2. DEPAKEN (VALPROATE SODIUM) [Concomitant]

REACTIONS (4)
  - ARTHRALGIA [None]
  - BLOOD FOLLICLE STIMULATING HORMONE ABNORMAL [None]
  - BLOOD LUTEINISING HORMONE ABNORMAL [None]
  - EPIPHYSIOLYSIS [None]
